FAERS Safety Report 6862469-2 (Version None)
Quarter: 2010Q3

REPORT INFORMATION
  Report Type: 
  Country: None (occurrence: None)
  Receive Date: 20100716
  Receipt Date: 20100630
  Transmission Date: 20110219
  Serious: Yes (Hospitalization)
  Sender: FDA-Public Use
  Company Number: CV20100313

PATIENT
  Age: 40 Year
  Sex: Female

DRUGS (13)
  1. PROPOFOL [Suspect]
     Indication: INDUCTION OF ANAESTHESIA
     Dosage: INTRAVENOUS
     Route: 042
     Dates: start: 20100426, end: 20100426
  2. ATRACURIUM [Concomitant]
  3. ULTIVA [Concomitant]
  4. NORMACOL LAVENT ADULTS (BACTRIM) [Concomitant]
  5. BETADINE [Concomitant]
  6. BETADINE DERIQUE (POVIDONE-IODINE) [Concomitant]
  7. AUGMENTIN '125' [Concomitant]
  8. NEURONTINE (GABAPENTIN) [Concomitant]
  9. KETAMINE PANPHARMA (KETAMINE HYDROCHLORIDE) [Concomitant]
  10. ACUPAN (NEOFOPAM HYDROCHLORIDE) [Concomitant]
  11. DEXAMETHASONE MERCK (DEXAMETHASONE SODIUM PHOSPHATE) [Concomitant]
  12. NAROPEINE (ROPIVACAINE HYDROCHLORIDE) [Concomitant]
  13. SPASFON [Concomitant]

REACTIONS (3)
  - HAEMATURIA [None]
  - LYMPHOPENIA [None]
  - RENAL FAILURE ACUTE [None]
